FAERS Safety Report 24256136 (Version 1)
Quarter: 2024Q3

REPORT INFORMATION
  Report Type: Spontaneous
  Country: CN (occurrence: CN)
  Receive Date: 20240827
  Receipt Date: 20240827
  Transmission Date: 20241016
  Serious: Yes (Hospitalization, Other)
  Sender: PFIZER
  Company Number: CN-PFIZER INC-PV202400109374

PATIENT
  Age: 43 Year
  Sex: Female
  Weight: 64 kg

DRUGS (4)
  1. EPIRUBICIN HYDROCHLORIDE [Suspect]
     Active Substance: EPIRUBICIN HYDROCHLORIDE
     Indication: Breast cancer
     Dosage: UNK
  2. EPIRUBICIN HYDROCHLORIDE [Suspect]
     Active Substance: EPIRUBICIN HYDROCHLORIDE
     Dosage: 160 MG, 1X/DAY (THE SECOND TIME)
     Route: 041
     Dates: start: 20240805, end: 20240805
  3. CYCLOPHOSPHAMIDE [Suspect]
     Active Substance: CYCLOPHOSPHAMIDE
     Indication: Breast cancer
     Dosage: UNK
  4. CYCLOPHOSPHAMIDE [Suspect]
     Active Substance: CYCLOPHOSPHAMIDE
     Dosage: 780 MG, 1X/DAY (THE SECOND TIME)
     Route: 041
     Dates: start: 20240805, end: 20240805

REACTIONS (12)
  - Granulocyte count decreased [Recovering/Resolving]
  - White blood cell count decreased [Recovering/Resolving]
  - Platelet count decreased [Recovering/Resolving]
  - Mean cell haemoglobin concentration decreased [Recovering/Resolving]
  - Lymphocyte count decreased [Recovering/Resolving]
  - Lymphocyte percentage increased [Recovering/Resolving]
  - Monocyte count decreased [Recovering/Resolving]
  - C-reactive protein increased [Recovering/Resolving]
  - Pneumonia [Recovering/Resolving]
  - Eosinophil count decreased [Unknown]
  - Basophil percentage increased [Unknown]
  - Neoplasm progression [Recovering/Resolving]

NARRATIVE: CASE EVENT DATE: 20240810
